FAERS Safety Report 20600727 (Version 3)
Quarter: 2022Q2

REPORT INFORMATION
  Report Type: Spontaneous
  Country: BR (occurrence: BR)
  Receive Date: 20220316
  Receipt Date: 20220615
  Transmission Date: 20220721
  Serious: Yes (Hospitalization, Other)
  Sender: FDA-Public Use
  Company Number: BR-009507513-2203BRA004414

PATIENT
  Age: 73 Year
  Sex: Male
  Weight: 75 kg

DRUGS (9)
  1. JANUVIA [Suspect]
     Active Substance: SITAGLIPTIN PHOSPHATE
     Indication: Type 2 diabetes mellitus
     Dosage: 25 MILLIGRAM, QD
     Route: 048
     Dates: start: 2014, end: 202203
  2. JANUVIA [Suspect]
     Active Substance: SITAGLIPTIN PHOSPHATE
     Dosage: 100 MILLIGRAM, QD
     Route: 048
     Dates: start: 202203
  3. PREDNISONE [Suspect]
     Active Substance: PREDNISONE
     Dosage: 20 MILLIGRAM, QD
  4. PREDNISONE [Suspect]
     Active Substance: PREDNISONE
     Dosage: 17.5 MILLIGRAM, QD
  5. ATORVASTATIN CALCIUM [Concomitant]
     Active Substance: ATORVASTATIN CALCIUM
     Indication: Blood cholesterol
     Dosage: 20 MILLIGRAM, QD
  6. PANTOPRAZOLE [Concomitant]
     Active Substance: PANTOPRAZOLE
  7. GLICLAZIDE [Concomitant]
     Active Substance: GLICLAZIDE
     Dosage: UNKNOWN
  8. VITAMIN D NOS [Concomitant]
     Active Substance: VITAMIN D NOS
     Dosage: 7000 IU, FREQUENCY: NOT INFORMED
  9. TAMSULOSIN HYDROCHLORIDE [Concomitant]
     Active Substance: TAMSULOSIN HYDROCHLORIDE
     Indication: Urine abnormality

REACTIONS (19)
  - Eye pain [Recovered/Resolved]
  - Autoimmune disorder [Unknown]
  - Diabetes mellitus inadequate control [Recovering/Resolving]
  - Panic disorder [Not Recovered/Not Resolved]
  - Benign prostatic hyperplasia [Not Recovered/Not Resolved]
  - Drug ineffective [Recovering/Resolving]
  - Arthritis [Recovering/Resolving]
  - COVID-19 [Recovered/Resolved with Sequelae]
  - Antibody test abnormal [Unknown]
  - Diplopia [Recovered/Resolved]
  - Memory impairment [Not Recovered/Not Resolved]
  - Alopecia [Not Recovered/Not Resolved]
  - Dyspnoea [Not Recovered/Not Resolved]
  - Gait inability [Unknown]
  - Sinusitis [Unknown]
  - Blood cholesterol increased [Not Recovered/Not Resolved]
  - Blood glucose increased [Recovering/Resolving]
  - Pain [Not Recovered/Not Resolved]
  - Fatigue [Not Recovered/Not Resolved]

NARRATIVE: CASE EVENT DATE: 20170101
